FAERS Safety Report 14452280 (Version 5)
Quarter: 2018Q3

REPORT INFORMATION
  Report Type: Report from Study
  Country: JP (occurrence: JP)
  Receive Date: 20180129
  Receipt Date: 20180702
  Transmission Date: 20181010
  Serious: Yes (Other)
  Sender: FDA-Public Use
  Company Number: PHJP2018JP001830

PATIENT
  Age: 45 Year
  Sex: Female

DRUGS (8)
  1. ZYKADIA [Suspect]
     Active Substance: CERITINIB
     Dosage: 600 MG, QD
     Route: 048
     Dates: start: 20171208, end: 20180103
  2. ZYKADIA [Suspect]
     Active Substance: CERITINIB
     Dosage: 450 MG, QD
     Route: 048
     Dates: start: 20180125, end: 20180402
  3. CISPLATIN. [Concomitant]
     Active Substance: CISPLATIN
     Indication: NON-SMALL CELL LUNG CANCER STAGE IIIB
     Dosage: 106 MG, UNK
     Route: 065
  4. ALIMTA [Concomitant]
     Active Substance: PEMETREXED DISODIUM
     Indication: NON-SMALL CELL LUNG CANCER STAGE IIIB
     Dosage: 700 MG, UNK
     Route: 065
  5. DECADRON [Concomitant]
     Active Substance: DEXAMETHASONE
     Indication: NON-SMALL CELL LUNG CANCER STAGE IIIB
     Dosage: 6.6 MG, UNK
     Route: 065
  6. ZYKADIA [Suspect]
     Active Substance: CERITINIB
     Indication: NON-SMALL CELL LUNG CANCER STAGE IIIB
     Dosage: 750 MG, QD
     Route: 048
     Dates: start: 20171205, end: 20171207
  7. FRESMIN S [Concomitant]
     Active Substance: HYDROXOCOBALAMIN
     Indication: NON-SMALL CELL LUNG CANCER STAGE IIIB
     Dosage: 1000 UG, UNK
     Route: 065
  8. PANVITAN [Concomitant]
     Indication: NON-SMALL CELL LUNG CANCER STAGE IIIB
     Dosage: 1 G, UNK
     Route: 048

REACTIONS (6)
  - Malignant neoplasm progression [Not Recovered/Not Resolved]
  - Vomiting [Recovering/Resolving]
  - Decreased appetite [Recovered/Resolved]
  - Hepatic function abnormal [Recovered/Resolved]
  - Malaise [Recovering/Resolving]
  - Non-small cell lung cancer stage IIIB [Not Recovered/Not Resolved]

NARRATIVE: CASE EVENT DATE: 20171208
